FAERS Safety Report 15522157 (Version 1)
Quarter: 2018Q4

REPORT INFORMATION
  Report Type: Spontaneous
  Country: US (occurrence: US)
  Receive Date: 20181019
  Receipt Date: 20181019
  Transmission Date: 20190205
  Serious: Yes (Other)
  Sender: FDA-Public Use
  Company Number: None

PATIENT
  Age: 55 Year
  Sex: Female
  Weight: 65.25 kg

DRUGS (1)
  1. DULAGULTINE [Suspect]
     Active Substance: DULAGLUTIDE
     Indication: DIABETES MELLITUS
     Dosage: ?          QUANTITY:1 INJECTION(S);OTHER FREQUENCY:ONCE A WEEK;OTHER ROUTE:INJECTION IN STOMACH?
     Dates: start: 20181017

REACTIONS (5)
  - Urticaria [None]
  - Vomiting [None]
  - Abdominal discomfort [None]
  - Injection site swelling [None]
  - Injection site pain [None]

NARRATIVE: CASE EVENT DATE: 20181017
